FAERS Safety Report 7247163-0 (Version None)
Quarter: 2011Q1

REPORT INFORMATION
  Report Type: 
  Country: None (occurrence: None)
  Receive Date: 20110127
  Receipt Date: 20101129
  Transmission Date: 20110831
  Serious: No
  Sender: FDA-Public Use
  Company Number: US-BAUSCH-2010BL006752

PATIENT
  Age: 83 Year
  Sex: Female

DRUGS (4)
  1. ALAWAY [Suspect]
     Indication: EYE PRURITUS
     Route: 047
     Dates: start: 20101108, end: 20101114
  2. GENTEAL [Concomitant]
     Indication: DRY EYE
     Route: 047
  3. ALAWAY [Suspect]
     Indication: OFF LABEL USE
     Route: 047
     Dates: start: 20101108, end: 20101114
  4. ALAWAY [Suspect]
     Indication: DRY EYE
     Route: 047
     Dates: start: 20101108, end: 20101114

REACTIONS (2)
  - EYE IRRITATION [None]
  - DRUG INEFFECTIVE FOR UNAPPROVED INDICATION [None]
